FAERS Safety Report 16919847 (Version 1)
Quarter: 2019Q4

REPORT INFORMATION
  Report Type: Report from Study
  Country: US (occurrence: US)
  Receive Date: 20191015
  Receipt Date: 20191015
  Transmission Date: 20200122
  Serious: Yes (Hospitalization, Other)
  Sender: FDA-Public Use
  Company Number: US-INCYTE CORPORATION-2019IN005897

PATIENT

DRUGS (2)
  1. JAKAFI [Suspect]
     Active Substance: RUXOLITINIB
     Indication: MYELOFIBROSIS
     Dosage: 15 MILLIGRAM, BID
     Route: 048
  2. JAKAFI [Suspect]
     Active Substance: RUXOLITINIB
     Dosage: 5 MILLIGRAM, BID
     Route: 048
     Dates: start: 20180208, end: 20190708

REACTIONS (7)
  - Sinus disorder [Unknown]
  - Respiration abnormal [Unknown]
  - Device dislocation [Unknown]
  - Pneumonia [Unknown]
  - Confusional state [Unknown]
  - Blood count abnormal [Unknown]
  - Catheter site haemorrhage [Unknown]
